FAERS Safety Report 24693401 (Version 2)
Quarter: 2024Q4

REPORT INFORMATION
  Report Type: Spontaneous
  Country: US (occurrence: US)
  Receive Date: 20241203
  Receipt Date: 20241215
  Transmission Date: 20250115
  Serious: No
  Sender: BAUSCH AND LOMB
  Company Number: US-BAUSCHBL-2024BNL037834

PATIENT
  Age: 70 Year
  Sex: Female

DRUGS (2)
  1. XIIDRA [Suspect]
     Active Substance: LIFITEGRAST
     Indication: Dry eye
     Route: 047
     Dates: start: 20241020
  2. PREDNISONE [Concomitant]
     Active Substance: PREDNISONE
     Indication: Dry eye

REACTIONS (6)
  - Vision blurred [Unknown]
  - Ill-defined disorder [Unknown]
  - Eye pain [Unknown]
  - Ocular hyperaemia [Unknown]
  - Product package associated injury [Unknown]
  - Circumstance or information capable of leading to medication error [Unknown]

NARRATIVE: CASE EVENT DATE: 20241119
